FAERS Safety Report 6884205-6 (Version None)
Quarter: 2010Q3

REPORT INFORMATION
  Report Type: 
  Country: None (occurrence: None)
  Receive Date: 20100729
  Receipt Date: 20031023
  Transmission Date: 20110219
  Serious: No
  Sender: FDA-Public Use
  Company Number: US-PFIZER INC-2007057563

PATIENT
  Age: 70 Year
  Sex: Female
  Weight: 81.65 kg

DRUGS (3)
  1. ACCUPRIL [Suspect]
     Indication: HYPERTENSION
  2. NORVASC [Suspect]
     Indication: HYPERTENSION
  3. HYDROCHLOROTHIAZIDE [Suspect]
     Indication: HYPERTENSION

REACTIONS (1)
  - BLOOD PRESSURE INADEQUATELY CONTROLLED [None]
